FAERS Safety Report 7389082-5 (Version None)
Quarter: 2011Q2

REPORT INFORMATION
  Report Type: 
  Country: None (occurrence: None)
  Receive Date: 20110401
  Receipt Date: 20110325
  Transmission Date: 20111010
  Serious: Yes (Hospitalization)
  Sender: FDA-Public Use
  Company Number: US-ROCHE-752876

PATIENT
  Sex: Male

DRUGS (4)
  1. RIBAVIRIN [Suspect]
     Indication: HEPATITIS C
     Route: 065
     Dates: start: 20101008, end: 20101230
  2. PEGINTERFERON ALFA-2A [Suspect]
     Dosage: DOSAGE DECREASE; WEEK 17
     Route: 065
     Dates: start: 20101230
  3. PEGINTERFERON ALFA-2A [Suspect]
     Indication: HEPATITIS C
     Route: 065
     Dates: start: 20101008, end: 20101230
  4. RIBAVIRIN [Suspect]
     Dosage: WEEK 17. DOSE REDUCED
     Route: 065
     Dates: start: 20101230

REACTIONS (7)
  - WHITE BLOOD CELL COUNT DECREASED [None]
  - FATIGUE [None]
  - MUSCLE SPASMS [None]
  - PLATELET COUNT DECREASED [None]
  - DRUG DOSE OMISSION [None]
  - HAND FRACTURE [None]
  - EPISTAXIS [None]
